FAERS Safety Report 25923197 (Version 1)
Quarter: 2025Q4

REPORT INFORMATION
  Report Type: Spontaneous
  Country: US (occurrence: US)
  Receive Date: 20251015
  Receipt Date: 20251015
  Transmission Date: 20260119
  Serious: No
  Sender: CIPLA
  Company Number: US-CIPLA LTD.-2025US12525

PATIENT

DRUGS (3)
  1. ALBUTEROL [Suspect]
     Active Substance: ALBUTEROL
     Indication: Dyspnoea
     Dosage: 180 MICROGRAM, PRN (EVERY 4-6 HOURS AS NEEDED)
  2. ALBUTEROL [Suspect]
     Active Substance: ALBUTEROL
     Indication: Illness
  3. ALBUTEROL [Suspect]
     Active Substance: ALBUTEROL
     Indication: Respiratory tract congestion

REACTIONS (2)
  - Drug dose omission by device [Unknown]
  - Device delivery system issue [Unknown]

NARRATIVE: CASE EVENT DATE: 20250801
